FAERS Safety Report 4667962-9 (Version None)
Quarter: 2005Q2

REPORT INFORMATION
  Report Type: 
  Country: None (occurrence: None)
  Receive Date: 20050520
  Receipt Date: 20050513
  Transmission Date: 20051028
  Serious: Yes (Death)
  Sender: FDA-Public Use
  Company Number: 2005AP02806

PATIENT
  Sex: Male

DRUGS (2)
  1. XYLOCAINE [Suspect]
     Indication: LOCAL ANAESTHESIA
     Dates: start: 20050511, end: 20050511
  2. GLUCAGONS [Concomitant]
     Route: 030
     Dates: start: 20050511

REACTIONS (1)
  - ANAPHYLACTIC SHOCK [None]
